FAERS Safety Report 10561825 (Version 2)
Quarter: 2015Q1

REPORT INFORMATION
  Report Type: Spontaneous
  Country: IT (occurrence: IT)
  Receive Date: 20141104
  Receipt Date: 20150216
  Transmission Date: 20150720
  Serious: Yes (Hospitalization)
  Sender: FDA-Public Use
  Company Number: IT-RANBAXY-2014RR-87148

PATIENT
  Age: 49 Year
  Sex: Female

DRUGS (2)
  1. SERTRALINE [Suspect]
     Active Substance: SERTRALINE HYDROCHLORIDE
     Indication: DRUG ABUSE
     Dosage: 30 DF TOTAL
     Route: 048
     Dates: start: 20140423, end: 20140423
  2. FLURAZEPAM [Suspect]
     Active Substance: FLURAZEPAM\FLURAZEPAM HYDROCHLORIDE
     Indication: DRUG ABUSE
     Dosage: 18 DF TOTAL
     Route: 048
     Dates: start: 20140423, end: 20140423

REACTIONS (2)
  - Drug abuse [Unknown]
  - Sopor [Unknown]

NARRATIVE: CASE EVENT DATE: 20140423
